FAERS Safety Report 22267282 (Version 13)
Quarter: 2025Q4

REPORT INFORMATION
  Report Type: Spontaneous
  Country: US (occurrence: US)
  Receive Date: 20230428
  Receipt Date: 20251117
  Transmission Date: 20260118
  Serious: No
  Sender: PFIZER
  Company Number: US-PFIZER INC-PV202300075575

PATIENT
  Age: 78 Year
  Sex: Female
  Weight: 62.3 kg

DRUGS (2)
  1. IBRANCE [Suspect]
     Active Substance: PALBOCICLIB
     Indication: Breast cancer female
     Dosage: 75 MG, CYCLIC [DAILY FOR 21 DAYS, THEN OFF FOR 7 DAYS, REPEAT CYCLE EVERY 28 DAYS]
     Route: 048
     Dates: start: 2017
  2. FEMARA [Concomitant]
     Active Substance: LETROZOLE
     Indication: Breast cancer female
     Dosage: UNK
     Dates: start: 2012

REACTIONS (2)
  - Illness [Recovered/Resolved]
  - Impaired healing [Unknown]

NARRATIVE: CASE EVENT DATE: 20200101
